FAERS Safety Report 9696197 (Version 1)
Quarter: 2013Q4

REPORT INFORMATION
  Report Type: Spontaneous
  Country: JP (occurrence: JP)
  Receive Date: 20131119
  Receipt Date: 20131119
  Transmission Date: 20140711
  Serious: Yes (Death, Other)
  Sender: FDA-Public Use
  Company Number: PHHY2013JP129589

PATIENT
  Age: 64 Year
  Sex: Female

DRUGS (10)
  1. CICLOSPORIN [Suspect]
     Indication: DERMATITIS EXFOLIATIVE
     Dosage: 5 MG/KG, PER DAY
  2. PREDNISOLONE [Suspect]
     Indication: ERYTHEMA
     Dosage: 20 MG, PER DAY
     Route: 048
  3. PREDNISOLONE [Suspect]
     Indication: DERMATITIS EXFOLIATIVE
     Dosage: 2 MG/KG, PER DAY
  4. PREDNISOLONE [Suspect]
     Dosage: 0.75 MG/KG, PER DAY
  5. PREDNISOLONE [Suspect]
     Dosage: 1 MG/KG, PER DAY
  6. CLOBETASOL PROPIONATE [Suspect]
     Indication: DERMATITIS EXFOLIATIVE
     Dosage: 0.05 UNK, UNK
     Route: 061
  7. ACYCLOVIR [Concomitant]
     Indication: HERPES VIRUS INFECTION
     Dosage: 15 MG/KG, PER DAY
     Route: 048
  8. VALACYCLOVIR HYDROCHLORIDE [Concomitant]
     Indication: HERPES VIRUS INFECTION
     Dosage: 15 MG/KG, PER DAY
  9. GANCICLOVIR [Concomitant]
     Dosage: 5 MG/KG, PER DAY
  10. GANCICLOVIR [Concomitant]
     Dosage: 5 MG, PER DAY, TWICE A WEEK

REACTIONS (6)
  - Aspergillus infection [Fatal]
  - Oral herpes [Unknown]
  - Cytomegalovirus infection [Unknown]
  - Dermatitis exfoliative [Unknown]
  - Erythema [Unknown]
  - Drug ineffective [Unknown]
